FAERS Safety Report 8451748 (Version 2)
Quarter: 2014Q2

REPORT INFORMATION
  Report Type: Spontaneous
  Country: US (occurrence: None)
  Receive Date: 20120216
  Receipt Date: 20140604
  Transmission Date: 20141212
  Serious: Yes (Hospitalization)
  Sender: FDA-Public Use
  Company Number: 20120106CINRY2552

PATIENT
  Age: 39 Year
  Sex: Male

DRUGS (3)
  1. CINRYZE [Suspect]
     Indication: HEREDITARY ANGIOEDEMA
     Dosage: (1000 IU, 2 IN 1 WK), INTRAVENOUS
     Route: 042
     Dates: start: 201106
  2. CINRYZE [Suspect]
     Indication: PROPHYLAXIS
     Dosage: (1000 IU, 2 IN 1 WK), INTRAVENOUS
     Route: 042
     Dates: start: 201106
  3. METFORMIN HYDROCHLORIDE [Concomitant]

REACTIONS (2)
  - Hereditary angioedema [None]
  - Incorrect dose administered [None]
